FAERS Safety Report 9706000 (Version 1)
Quarter: 2013Q4

REPORT INFORMATION
  Report Type: Spontaneous
  Country: US (occurrence: US)
  Receive Date: 20131122
  Receipt Date: 20131122
  Transmission Date: 20140711
  Serious: Yes (Life-Threatening, Hospitalization, Other)
  Sender: FDA-Public Use
  Company Number: US-ABBVIE-13P-163-1171979-00

PATIENT
  Age: 49 Year
  Sex: Male
  Weight: 83.99 kg

DRUGS (2)
  1. HUMIRA [Suspect]
     Indication: ECZEMA
     Dates: start: 2010, end: 201211
  2. FUROSEMIDE [Concomitant]
     Indication: RENAL DISORDER

REACTIONS (7)
  - Aortic aneurysm [Unknown]
  - Chest pain [Recovered/Resolved]
  - Loss of consciousness [Recovered/Resolved]
  - Respiratory arrest [Recovered/Resolved]
  - Hypertension [Unknown]
  - Proteinuria [Unknown]
  - Renal impairment [Not Recovered/Not Resolved]
